FAERS Safety Report 26041173 (Version 1)
Quarter: 2025Q4

REPORT INFORMATION
  Report Type: Spontaneous
  Country: US (occurrence: US)
  Receive Date: 20251113
  Receipt Date: 20251113
  Transmission Date: 20260118
  Serious: No
  Sender: BAYER HEALTHCARE PHARMACEUTICALS INC.
  Company Number: US-BAYER-2025A147740

PATIENT
  Age: 76 Year
  Sex: Female

DRUGS (1)
  1. CLIMARA PRO [Suspect]
     Active Substance: ESTRADIOL\LEVONORGESTREL
     Indication: Osteoporosis
     Dosage: UNK
     Route: 062
     Dates: start: 20251011, end: 20251028

REACTIONS (8)
  - Back pain [None]
  - Pain in extremity [None]
  - Arthralgia [None]
  - Breast tenderness [None]
  - Breast swelling [None]
  - Neuralgia [None]
  - Breast pain [None]
  - Breast discomfort [None]

NARRATIVE: CASE EVENT DATE: 20251001
